FAERS Safety Report 11644078 (Version 1)
Quarter: 2015Q4

REPORT INFORMATION
  Report Type: Spontaneous
  Country: US (occurrence: None)
  Receive Date: 20151019
  Receipt Date: 20151019
  Transmission Date: 20160304
  Serious: No
  Sender: FDA-Public Use
  Company Number: None

PATIENT
  Age: 43 Year
  Sex: Female
  Weight: 65.32 kg

DRUGS (11)
  1. CALCIUM [Concomitant]
     Active Substance: CALCIUM
  2. MAXALT [Concomitant]
     Active Substance: RIZATRIPTAN BENZOATE
  3. MAGNESIUM [Concomitant]
     Active Substance: MAGNESIUM
  4. ZONISAMIDE 150 MG MYLAN [Suspect]
     Active Substance: ZONISAMIDE
     Indication: MIGRAINE
     Route: 048
     Dates: start: 20140101, end: 20151016
  5. FISH OIL [Concomitant]
     Active Substance: FISH OIL
  6. B2 [Concomitant]
  7. NEXIUM [Concomitant]
     Active Substance: ESOMEPRAZOLE MAGNESIUM
  8. PEPCID [Concomitant]
     Active Substance: FAMOTIDINE
  9. LEVOTHYROXINE. [Concomitant]
     Active Substance: LEVOTHYROXINE
  10. PROPRANOLOL [Concomitant]
     Active Substance: PROPRANOLOL\PROPRANOLOL HYDROCHLORIDE
  11. NEURONTIN [Concomitant]
     Active Substance: GABAPENTIN

REACTIONS (4)
  - Palpitations [None]
  - Fatigue [None]
  - Weight decreased [None]
  - Nephrolithiasis [None]

NARRATIVE: CASE EVENT DATE: 20151009
